FAERS Safety Report 4964395-2 (Version None)
Quarter: 2006Q1

REPORT INFORMATION
  Report Type: 
  Country: None (occurrence: None)
  Receive Date: 20060331
  Receipt Date: 20060320
  Transmission Date: 20060701
  Serious: Yes (Other)
  Sender: FDA-Public Use
  Company Number: 77

PATIENT
  Sex: 0

DRUGS (1)
  1. DYNACIN [Suspect]
     Dosage: 100 MG BID PO
     Route: 048

REACTIONS (1)
  - SQUAMOUS CELL CARCINOMA [None]
